FAERS Safety Report 4320607-X (Version None)
Quarter: 2004Q1

REPORT INFORMATION
  Report Type: 
  Country: None (occurrence: None)
  Receive Date: 20040318
  Receipt Date: 20040212
  Transmission Date: 20041129
  Serious: Yes (Hospitalization)
  Sender: FDA-Public Use
  Company Number: IT-JNJFOC-20040202849

PATIENT
  Age: 74 Year
  Sex: Female

DRUGS (5)
  1. REMICADE [Suspect]
     Indication: RHEUMATOID ARTHRITIS
     Dosage: 210 MG, 1IN 6 WEEK, INTRAVENOUS
     Route: 042
     Dates: start: 20031119, end: 20040105
  2. METHOTREXATE [Concomitant]
  3. URBASON (METHYLPREDNISOLONE) [Concomitant]
  4. ALENDRONATE SODIUM [Concomitant]
  5. EUTIROX (LEVOTHYROXONE) [Concomitant]

REACTIONS (2)
  - MALAISE [None]
  - MYALGIA [None]
